FAERS Safety Report 7813261-3 (Version None)
Quarter: 2011Q4

REPORT INFORMATION
  Report Type: 
  Country: None (occurrence: None)
  Receive Date: 20111013
  Receipt Date: 20111007
  Transmission Date: 20120403
  Serious: Yes (Life-Threatening, Hospitalization)
  Sender: FDA-Public Use
  Company Number: US-MERCK-1107USA01606

PATIENT
  Age: 63 Year
  Sex: Female
  Weight: 88 kg

DRUGS (17)
  1. JANUVIA [Suspect]
     Route: 048
     Dates: start: 20110401
  2. OMEPRAZOLE [Concomitant]
     Indication: HYPERCHLORHYDRIA
     Route: 065
  3. METFFORMIN HYDROCHLORIDE [Suspect]
     Indication: DIABETES MELLITUS
     Route: 048
     Dates: end: 20110301
  4. DIOVAN [Concomitant]
     Indication: PROPHYLAXIS
     Route: 048
     Dates: end: 20110225
  5. ULTRAM [Concomitant]
     Indication: PAIN
     Route: 048
  6. METOCLOPRAMIDE HYDROCHLORIDE [Concomitant]
     Indication: NAUSEA
     Route: 065
  7. JANUVIA [Suspect]
     Indication: TYPE 2 DIABETES MELLITUS
     Route: 048
     Dates: start: 20091001, end: 20110301
  8. LEVOTHYROXINE SODIUM [Concomitant]
     Indication: HYPOTHYROIDISM
     Route: 065
  9. OPANA [Concomitant]
     Indication: PAIN
     Route: 065
     Dates: end: 20110225
  10. SERTRALINE HYDROCHLORIDE [Concomitant]
     Indication: DEPRESSION
     Route: 048
  11. ZOFRAN [Concomitant]
     Indication: NAUSEA
     Route: 048
     Dates: start: 20110225
  12. LORAZEPAM [Concomitant]
     Indication: ANXIETY
     Route: 048
  13. ZOFRAN [Concomitant]
     Route: 048
     Dates: end: 20110225
  14. LANTUS [Concomitant]
     Route: 065
  15. CRESTOR [Concomitant]
     Indication: BLOOD CHOLESTEROL
     Route: 048
     Dates: end: 20110225
  16. DIOVAN [Concomitant]
     Indication: BLOOD PRESSURE
     Route: 048
     Dates: end: 20110225
  17. SERTRALINE HYDROCHLORIDE [Concomitant]
     Indication: ANXIETY
     Route: 048

REACTIONS (7)
  - RENAL FAILURE ACUTE [None]
  - GASTRITIS [None]
  - VOMITING [None]
  - GENERALISED OEDEMA [None]
  - RENAL FAILURE CHRONIC [None]
  - NAUSEA [None]
  - OEDEMA PERIPHERAL [None]
